FAERS Safety Report 4501594-8 (Version None)
Quarter: 2004Q3

REPORT INFORMATION
  Report Type: 
  Country: None (occurrence: None)
  Receive Date: 20040928
  Receipt Date: 20040827
  Transmission Date: 20050211
  Serious: No
  Sender: FDA-Public Use
  Company Number: 04P-163-0272036-00

PATIENT
  Age: 46 Year
  Sex: Female
  Weight: 104.3273 kg

DRUGS (3)
  1. HUMIRA [Suspect]
     Indication: JUVENILE ARTHRITIS
     Dosage: 1 IN 2 WK SUBCUTANEOUS
     Route: 058
     Dates: start: 20040601, end: 20040701
  2. NAPROXEN SODIUM [Concomitant]
  3. ACETAMINOPHEN [Concomitant]

REACTIONS (1)
  - TOOTH INFECTION [None]
